FAERS Safety Report 19892722 (Version 1)
Quarter: 2021Q3

REPORT INFORMATION
  Report Type: Spontaneous
  Country: US (occurrence: US)
  Receive Date: 20210928
  Receipt Date: 20210928
  Transmission Date: 20211014
  Serious: Yes (Hospitalization, Other)
  Sender: FDA-Public Use
  Company Number: US-PURDUE-USA-2021-0285151

PATIENT
  Age: 60 Year
  Sex: Female

DRUGS (2)
  1. OXYCONTIN [Suspect]
     Active Substance: OXYCODONE HYDROCHLORIDE
     Indication: PRODUCT USED FOR UNKNOWN INDICATION
     Dosage: 20 MG, QD
     Route: 048
  2. OXYCONTIN [Suspect]
     Active Substance: OXYCODONE HYDROCHLORIDE
     Dosage: 420 MG, QD
     Route: 048

REACTIONS (6)
  - Drug withdrawal syndrome [Unknown]
  - Paralysis [Unknown]
  - Incontinence [Unknown]
  - Gait disturbance [Unknown]
  - Drug dependence [Unknown]
  - Loss of personal independence in daily activities [Unknown]
